FAERS Safety Report 9696795 (Version 2)
Quarter: 2013Q4

REPORT INFORMATION
  Report Type: Spontaneous
  Country: US (occurrence: US)
  Receive Date: 20131119
  Receipt Date: 20131119
  Transmission Date: 20140711
  Serious: No
  Sender: FDA-Public Use
  Company Number: US-GILEAD-2007-0014617

PATIENT
  Sex: Female
  Weight: 88.9 kg

DRUGS (17)
  1. LETAIRIS [Suspect]
     Indication: PULMONARY ARTERIAL HYPERTENSION
     Route: 048
     Dates: start: 20071113
  2. LASIX [Concomitant]
     Route: 048
  3. KLOR-CON [Concomitant]
     Route: 048
  4. ELAVIL [Concomitant]
     Route: 048
  5. MOTRIN IB [Concomitant]
     Route: 048
  6. VENTOLIN NEBULIZER [Concomitant]
     Route: 055
  7. SINGULAIR [Concomitant]
     Dosage: QPM
     Route: 048
  8. PULMICORT [Concomitant]
     Route: 055
  9. IPRATROPIUM [Concomitant]
     Route: 055
  10. REVATIO [Concomitant]
     Route: 048
  11. LEXAPRO [Concomitant]
     Route: 048
  12. OXYGEN [Concomitant]
     Dosage: CONTINUOUS
     Route: 045
  13. LANTUS [Concomitant]
     Route: 058
  14. ACIPHEX [Concomitant]
     Route: 048
  15. NOVOLIN 70/30 [Concomitant]
     Route: 058
  16. LISINOPRIL [Concomitant]
     Route: 048
  17. GLUCOPHAGE [Concomitant]
     Route: 048

REACTIONS (3)
  - Palpitations [Not Recovered/Not Resolved]
  - Chest discomfort [Not Recovered/Not Resolved]
  - Heart rate increased [Not Recovered/Not Resolved]
